FAERS Safety Report 8586124 (Version 2)
Quarter: 2012Q4

REPORT INFORMATION
  Report Type: 
  Country: US (occurrence: US)
  Receive Date: 20120530
  Receipt Date: 20121116
  Transmission Date: 20130627
  Serious: Yes (Hospitalization)
  Sender: FDA-Public Use
  Company Number: US-GLAXOSMITHKLINE-A0952187A

PATIENT
  Age: 45 Year
  Sex: Female

DRUGS (3)
  1. VENTOLIN [Suspect]
     Indication: ASTHMA
     Dosage: 2PUFF Four times per day
     Route: 055
     Dates: start: 2006
  2. OXYGEN [Concomitant]
  3. ALBUTEROL NEBULIZER [Concomitant]

REACTIONS (6)
  - Pneumonia [Unknown]
  - Dyspnoea [Unknown]
  - Overdose [Unknown]
  - Chest pain [Unknown]
  - Nightmare [Unknown]
  - Drug administration error [Unknown]
